FAERS Safety Report 24318476 (Version 2)
Quarter: 2024Q4

REPORT INFORMATION
  Report Type: Report from Study
  Country: JP (occurrence: JP)
  Receive Date: 20240913
  Receipt Date: 20241021
  Transmission Date: 20250114
  Serious: Yes (Hospitalization, Other)
  Sender: ALEXION PHARMACEUTICALS
  Company Number: 2024A203880

PATIENT
  Age: 90 Year
  Weight: 51 kg

DRUGS (4)
  1. TEZEPELUMAB [Suspect]
     Active Substance: TEZEPELUMAB
     Indication: Asthma
     Dosage: DOSE UNKNOWN
  2. TEZEPELUMAB [Suspect]
     Active Substance: TEZEPELUMAB
     Dosage: DOSE UNKNOWN
  3. TEZEPELUMAB [Suspect]
     Active Substance: TEZEPELUMAB
     Dosage: DOSE UNKNOWN
  4. TEZEPELUMAB [Suspect]
     Active Substance: TEZEPELUMAB
     Dosage: DOSE UNKNOWN

REACTIONS (4)
  - Muscular weakness [Unknown]
  - Dementia [Unknown]
  - Oedema peripheral [Unknown]
  - Rhinitis allergic [Recovered/Resolved]
